FAERS Safety Report 5019431-4 (Version None)
Quarter: 2006Q2

REPORT INFORMATION
  Report Type: 
  Country: None (occurrence: None)
  Receive Date: 20060531
  Receipt Date: 20060517
  Transmission Date: 20061013
  Serious: Yes (Other)
  Sender: FDA-Public Use
  Company Number: 02100-EUR-06-0029

PATIENT
  Age: 63 Year
  Sex: Male

DRUGS (4)
  1. CILOSTAZOL [Suspect]
     Indication: INTERMITTENT CLAUDICATION
     Dosage: 100 MG ORAL
     Route: 048
     Dates: start: 20050701, end: 20060301
  2. SIMVASTATIN [Concomitant]
  3. ASPIRIN [Concomitant]
  4. INSULIN LISPRO [Concomitant]

REACTIONS (2)
  - MUSCLE SPASMS [None]
  - RASH ERYTHEMATOUS [None]
